FAERS Safety Report 9760372 (Version 2)
Quarter: 2013Q4

REPORT INFORMATION
  Report Type: Spontaneous
  Country: US (occurrence: US)
  Receive Date: 20131216
  Receipt Date: 20131216
  Transmission Date: 20140711
  Serious: No
  Sender: FDA-Public Use
  Company Number: US-GILEAD-2010-0029329

PATIENT
  Age: 73 Year
  Sex: Female
  Weight: 73.94 kg

DRUGS (9)
  1. LETAIRIS [Suspect]
     Indication: PULMONARY ARTERIAL HYPERTENSION
     Route: 048
     Dates: start: 20100504
  2. OXYCODONE/APAP [Concomitant]
     Indication: PAIN
  3. LISINOPRIL [Concomitant]
     Indication: HYPERTENSION
  4. GABAPENTIN [Concomitant]
     Indication: PAIN
  5. MIRAPEX [Concomitant]
     Indication: RESTLESS LEGS SYNDROME
  6. OXYBUTIN [Concomitant]
     Indication: URINARY TRACT DISORDER
  7. AMBIEN [Concomitant]
     Indication: INSOMNIA
  8. WARFARIN [Concomitant]
     Indication: ATRIAL FIBRILLATION
  9. WARFARIN [Concomitant]
     Indication: PULMONARY ARTERIAL HYPERTENSION

REACTIONS (3)
  - Liver function test abnormal [Recovered/Resolved]
  - Nausea [Recovered/Resolved]
  - Oedema peripheral [Recovered/Resolved]
